FAERS Safety Report 18142157 (Version 10)
Quarter: 2025Q1

REPORT INFORMATION
  Report Type: Report from Study
  Country: DE (occurrence: DE)
  Receive Date: 20200812
  Receipt Date: 20250225
  Transmission Date: 20250409
  Serious: Yes (Hospitalization, Other)
  Sender: MYLAN
  Company Number: DE-ROCHE-2329766

PATIENT
  Age: 47 Year
  Sex: Female

DRUGS (64)
  1. AMLODIPINE [Suspect]
     Active Substance: AMLODIPINE BESYLATE
     Indication: Product used for unknown indication
     Dosage: 5 MILLIGRAM, QD
     Dates: start: 20191117
  2. AMLODIPINE [Suspect]
     Active Substance: AMLODIPINE BESYLATE
     Dosage: 5 MILLIGRAM, QD
     Route: 065
     Dates: start: 20191117
  3. AMLODIPINE [Suspect]
     Active Substance: AMLODIPINE BESYLATE
     Dosage: 5 MILLIGRAM, QD
     Route: 065
     Dates: start: 20191117
  4. AMLODIPINE [Suspect]
     Active Substance: AMLODIPINE BESYLATE
     Dosage: 5 MILLIGRAM, QD
     Dates: start: 20191117
  5. OCREVUS [Suspect]
     Active Substance: OCRELIZUMAB
     Indication: Relapsing-remitting multiple sclerosis
     Route: 042
  6. OCREVUS [Suspect]
     Active Substance: OCRELIZUMAB
  7. OCREVUS [Suspect]
     Active Substance: OCRELIZUMAB
  8. OCREVUS [Suspect]
     Active Substance: OCRELIZUMAB
     Route: 042
  9. OCREVUS [Suspect]
     Active Substance: OCRELIZUMAB
     Route: 042
  10. OCREVUS [Suspect]
     Active Substance: OCRELIZUMAB
  11. OCREVUS [Suspect]
     Active Substance: OCRELIZUMAB
  12. OCREVUS [Suspect]
     Active Substance: OCRELIZUMAB
     Route: 042
  13. OCREVUS [Suspect]
     Active Substance: OCRELIZUMAB
  14. OCREVUS [Suspect]
     Active Substance: OCRELIZUMAB
  15. OCREVUS [Suspect]
     Active Substance: OCRELIZUMAB
     Route: 042
  16. OCREVUS [Suspect]
     Active Substance: OCRELIZUMAB
     Route: 042
  17. OCREVUS [Suspect]
     Active Substance: OCRELIZUMAB
  18. OCREVUS [Suspect]
     Active Substance: OCRELIZUMAB
  19. OCREVUS [Suspect]
     Active Substance: OCRELIZUMAB
     Route: 042
  20. OCREVUS [Suspect]
     Active Substance: OCRELIZUMAB
     Route: 042
  21. CARBIMAZOLE [Concomitant]
     Active Substance: CARBIMAZOLE
  22. CARBIMAZOLE [Concomitant]
     Active Substance: CARBIMAZOLE
     Route: 065
  23. CARBIMAZOLE [Concomitant]
     Active Substance: CARBIMAZOLE
     Route: 065
  24. CARBIMAZOLE [Concomitant]
     Active Substance: CARBIMAZOLE
  25. DALFAMPRIDINE [Concomitant]
     Active Substance: DALFAMPRIDINE
  26. DALFAMPRIDINE [Concomitant]
     Active Substance: DALFAMPRIDINE
  27. DALFAMPRIDINE [Concomitant]
     Active Substance: DALFAMPRIDINE
     Route: 065
  28. DALFAMPRIDINE [Concomitant]
     Active Substance: DALFAMPRIDINE
     Route: 065
  29. DALFAMPRIDINE [Concomitant]
     Active Substance: DALFAMPRIDINE
     Dosage: 10 MILLIGRAM, BID
  30. DALFAMPRIDINE [Concomitant]
     Active Substance: DALFAMPRIDINE
     Dosage: 10 MILLIGRAM, BID
  31. DALFAMPRIDINE [Concomitant]
     Active Substance: DALFAMPRIDINE
     Dosage: 10 MILLIGRAM, BID
     Route: 065
  32. DALFAMPRIDINE [Concomitant]
     Active Substance: DALFAMPRIDINE
     Dosage: 10 MILLIGRAM, BID
     Route: 065
  33. CHOLECALCIFEROL [Concomitant]
     Active Substance: CHOLECALCIFEROL
  34. CHOLECALCIFEROL [Concomitant]
     Active Substance: CHOLECALCIFEROL
     Route: 065
  35. CHOLECALCIFEROL [Concomitant]
     Active Substance: CHOLECALCIFEROL
     Route: 065
  36. CHOLECALCIFEROL [Concomitant]
     Active Substance: CHOLECALCIFEROL
  37. NABIXIMOLS [Concomitant]
     Active Substance: NABIXIMOLS
  38. NABIXIMOLS [Concomitant]
     Active Substance: NABIXIMOLS
     Route: 065
  39. NABIXIMOLS [Concomitant]
     Active Substance: NABIXIMOLS
     Route: 065
  40. NABIXIMOLS [Concomitant]
     Active Substance: NABIXIMOLS
  41. FOLIC ACID [Concomitant]
     Active Substance: FOLIC ACID
  42. FOLIC ACID [Concomitant]
     Active Substance: FOLIC ACID
     Route: 065
  43. FOLIC ACID [Concomitant]
     Active Substance: FOLIC ACID
     Route: 065
  44. FOLIC ACID [Concomitant]
     Active Substance: FOLIC ACID
  45. TIZANIDINE [Concomitant]
     Active Substance: TIZANIDINE
  46. TIZANIDINE [Concomitant]
     Active Substance: TIZANIDINE
  47. TIZANIDINE [Concomitant]
     Active Substance: TIZANIDINE
     Route: 065
  48. TIZANIDINE [Concomitant]
     Active Substance: TIZANIDINE
     Route: 065
  49. TIZANIDINE [Concomitant]
     Active Substance: TIZANIDINE
  50. TIZANIDINE [Concomitant]
     Active Substance: TIZANIDINE
  51. TIZANIDINE [Concomitant]
     Active Substance: TIZANIDINE
     Route: 065
  52. TIZANIDINE [Concomitant]
     Active Substance: TIZANIDINE
     Route: 065
  53. RAMIPRIL [Concomitant]
     Active Substance: RAMIPRIL
  54. RAMIPRIL [Concomitant]
     Active Substance: RAMIPRIL
     Route: 065
  55. RAMIPRIL [Concomitant]
     Active Substance: RAMIPRIL
     Route: 065
  56. RAMIPRIL [Concomitant]
     Active Substance: RAMIPRIL
  57. TOLPERISONE [Concomitant]
     Active Substance: TOLPERISONE
  58. TOLPERISONE [Concomitant]
     Active Substance: TOLPERISONE
     Route: 065
  59. TOLPERISONE [Concomitant]
     Active Substance: TOLPERISONE
     Route: 065
  60. TOLPERISONE [Concomitant]
     Active Substance: TOLPERISONE
  61. MONTELUKAST SODIUM [Concomitant]
     Active Substance: MONTELUKAST SODIUM
  62. MONTELUKAST SODIUM [Concomitant]
     Active Substance: MONTELUKAST SODIUM
     Route: 065
  63. MONTELUKAST SODIUM [Concomitant]
     Active Substance: MONTELUKAST SODIUM
     Route: 065
  64. MONTELUKAST SODIUM [Concomitant]
     Active Substance: MONTELUKAST SODIUM

REACTIONS (16)
  - Circulatory collapse [Recovered/Resolved]
  - Colitis microscopic [Recovering/Resolving]
  - Tachycardia [Recovered/Resolved]
  - Syncope [Recovered/Resolved]
  - Blood pressure fluctuation [Recovered/Resolved]
  - Influenza like illness [Recovered/Resolved]
  - Gait disturbance [Not Recovered/Not Resolved]
  - Spinal pain [Recovered/Resolved]
  - Erythema [Recovered/Resolved]
  - COVID-19 [Recovered/Resolved]
  - Headache [Recovered/Resolved]
  - Fatigue [Recovered/Resolved]
  - Swelling [Recovered/Resolved]
  - Pain [Not Recovered/Not Resolved]
  - Back pain [Not Recovered/Not Resolved]
  - B-lymphocyte count decreased [Recovered/Resolved]

NARRATIVE: CASE EVENT DATE: 20190510
